FAERS Safety Report 8381964-0 (Version None)
Quarter: 2012Q2

REPORT INFORMATION
  Report Type: 
  Country: None (occurrence: None)
  Receive Date: 20120524
  Receipt Date: 20120508
  Transmission Date: 20120825
  Serious: Yes (Other)
  Sender: FDA-Public Use
  Company Number: JP-JNJFOC-20120305863

PATIENT
  Age: 6 Decade

DRUGS (7)
  1. FENTANYL-100 [Suspect]
     Indication: PAIN
     Route: 062
  2. FENTANYL-100 [Suspect]
     Route: 062
  3. LYRICA [Concomitant]
     Indication: PAIN
     Route: 048
  4. FENTANYL-100 [Suspect]
     Route: 062
  5. FENTANYL-100 [Suspect]
     Route: 062
  6. FENTANYL-100 [Suspect]
     Route: 062
  7. FENTANYL-100 [Suspect]
     Route: 062

REACTIONS (6)
  - CONSTIPATION [None]
  - HYPOAESTHESIA [None]
  - INAPPROPRIATE SCHEDULE OF DRUG ADMINISTRATION [None]
  - TINNITUS [None]
  - NAUSEA [None]
  - INADEQUATE ANALGESIA [None]
